FAERS Safety Report 12727213 (Version 1)
Quarter: 2016Q3

REPORT INFORMATION
  Report Type: Spontaneous
  Country: FR (occurrence: FR)
  Receive Date: 20160909
  Receipt Date: 20160909
  Transmission Date: 20161109
  Serious: Yes (Death)
  Sender: FDA-Public Use
  Company Number: FR-009507513-1609FRA003400

PATIENT
  Age: 60 Year
  Sex: Male

DRUGS (10)
  1. SIMVASTATIN ARROW [Suspect]
     Active Substance: SIMVASTATIN
     Indication: HYPERCHOLESTEROLAEMIA
     Dosage: 40 MG (REPORTED AS 1 DF), QD
     Route: 048
     Dates: end: 20160821
  2. SMECTITE [Suspect]
     Active Substance: MONTMORILLONITE
     Dosage: 3 DF, QD
     Route: 048
     Dates: start: 20160801, end: 20160803
  3. NEORAL [Suspect]
     Active Substance: CYCLOSPORINE
     Dosage: 400 MG, QD
     Route: 048
     Dates: start: 20160812, end: 20160818
  4. THYMOGLOBULIN [Suspect]
     Active Substance: LAPINE T-LYMPHOCYTE IMMUNE GLOBULIN
     Dosage: UNK
     Route: 042
     Dates: start: 20160730, end: 20160731
  5. BISOPROLOL FUMARATE. [Suspect]
     Active Substance: BISOPROLOL FUMARATE
     Dosage: 1 DF, QD
     Route: 048
     Dates: end: 20160822
  6. AERIUS [Suspect]
     Active Substance: DESLORATADINE
     Dosage: 10MG (REPORTED AS ^2 DF^), QD
     Route: 048
     Dates: start: 20160726, end: 20160803
  7. TIORFAN [Suspect]
     Active Substance: RACECADOTRIL
     Dosage: 300MG (REPORTED AS ^3 DF^), QD
     Route: 048
     Dates: start: 20160801, end: 20160803
  8. SANDIMMUN [Suspect]
     Active Substance: CYCLOSPORINE
     Dosage: STRENGTH 50MG/ML, 220 MG, QD
     Route: 042
     Dates: start: 20160801, end: 20160810
  9. ZELITREX [Suspect]
     Active Substance: VALACYCLOVIR HYDROCHLORIDE
     Dosage: 500MG (REPORTED AS ^1 DF^), QD
     Route: 048
     Dates: start: 20160727, end: 20160822
  10. ZYLORIC [Suspect]
     Active Substance: ALLOPURINOL
     Dosage: 100MG (REPORTED AS ^1 DF^), QD
     Route: 048
     Dates: end: 20160818

REACTIONS (5)
  - Acute kidney injury [Fatal]
  - Rhabdomyolysis [Fatal]
  - Shock [Fatal]
  - Confusional state [Fatal]
  - Renal tubular necrosis [Fatal]

NARRATIVE: CASE EVENT DATE: 20160803
